FAERS Safety Report 25283777 (Version 1)
Quarter: 2025Q2

REPORT INFORMATION
  Report Type: Report from Study
  Country: GR (occurrence: GR)
  Receive Date: 20250508
  Receipt Date: 20250508
  Transmission Date: 20250716
  Serious: Yes (Death, Hospitalization, Other)
  Sender: TAKEDA
  Company Number: GR-TAKEDA-2025TUS009222

PATIENT
  Age: 73 Year
  Sex: Male

DRUGS (5)
  1. HUMAN IMMUNOGLOBULIN G\HYALURONIDASE RECOMBINANT HUMAN [Suspect]
     Active Substance: HUMAN IMMUNOGLOBULIN G\HYALURONIDASE (HUMAN RECOMBINANT)
     Indication: Plasma cell myeloma
     Dosage: 300 MILLILITER, MONTHLY
     Dates: start: 202406
  2. HUMAN IMMUNOGLOBULIN G\HYALURONIDASE RECOMBINANT HUMAN [Suspect]
     Active Substance: HUMAN IMMUNOGLOBULIN G\HYALURONIDASE (HUMAN RECOMBINANT)
     Dosage: 300 MILLILITER, MONTHLY
     Dates: start: 20241106, end: 20250123
  3. VALTREX [Concomitant]
     Active Substance: VALACYCLOVIR HYDROCHLORIDE
     Dosage: 1000 MILLIGRAM, QD
  4. AMLODIPINE BESYLATE [Concomitant]
     Active Substance: AMLODIPINE BESYLATE
     Indication: Blood pressure abnormal
  5. XANAX [Concomitant]
     Active Substance: ALPRAZOLAM

REACTIONS (7)
  - Plasma cell myeloma [Fatal]
  - Sepsis [Fatal]
  - Bacteraemia [Unknown]
  - Blood creatine increased [Unknown]
  - Urine output decreased [Unknown]
  - Haematocrit decreased [Not Recovered/Not Resolved]
  - Pyrexia [Not Recovered/Not Resolved]

NARRATIVE: CASE EVENT DATE: 20250201
